FAERS Safety Report 5468073-5 (Version None)
Quarter: 2007Q3

REPORT INFORMATION
  Report Type: 
  Country: None (occurrence: None)
  Receive Date: 20070920
  Receipt Date: 20070419
  Transmission Date: 20080115
  Serious: No
  Sender: FDA-Public Use
  Company Number: WAES 0703USA00607

PATIENT
  Age: 56 Year
  Sex: Female
  Weight: 116.1208 kg

DRUGS (1)
  1. JANUVIA [Suspect]
     Indication: DIABETES MELLITUS
     Dosage: 100 MG/DAILY/PO
     Route: 048
     Dates: start: 20061108, end: 20061119

REACTIONS (4)
  - ABDOMINAL PAIN [None]
  - NAUSEA [None]
  - TREMOR [None]
  - VOMITING [None]
